FAERS Safety Report 16574749 (Version 1)
Quarter: 2019Q3

REPORT INFORMATION
  Report Type: Spontaneous
  Country: US (occurrence: US)
  Receive Date: 20190715
  Receipt Date: 20190715
  Transmission Date: 20191004
  Serious: No
  Sender: FDA-Public Use
  Company Number: US-JUBILANT PHARMA LTD-2019US000507

PATIENT
  Sex: Female

DRUGS (6)
  1. TECHNETIUM TC-99M SESTAMIBI KIT [Suspect]
     Active Substance: TECHNETIUM TC-99M SESTAMIBI
     Indication: SCAN MYOCARDIAL PERFUSION
     Dosage: UNK UNK, SINGLE DOSE
     Dates: start: 20190515
  2. LIPITOR [Concomitant]
     Active Substance: ATORVASTATIN CALCIUM
     Dosage: 10 MG PER DAY, 3 TIMES A WEEK
  3. CALCIUM [Concomitant]
     Active Substance: CALCIUM
     Dosage: 1200 MG, ONCE PER DAY
  4. BIOTIN [Concomitant]
     Active Substance: BIOTIN
     Dosage: UNK
  5. FISH OIL [Concomitant]
     Active Substance: FISH OIL
     Dosage: 1000 MG, ONCE PER DAY
  6. TECHNETIUM TC-99M SESTAMIBI KIT [Suspect]
     Active Substance: TECHNETIUM TC-99M SESTAMIBI
     Dosage: UNK UNK, SINGLE DOSE [UNKNOWN IF PRESCRIBED DOSE ADJUSTED FOLLOWING EVENTS ON 15-MAY-2019]
     Dates: start: 20190522

REACTIONS (3)
  - Pruritus [Recovered/Resolved]
  - Urticaria [Recovered/Resolved]
  - Rash [Recovered/Resolved]

NARRATIVE: CASE EVENT DATE: 20190515
